FAERS Safety Report 23772208 (Version 1)
Quarter: 2024Q2

REPORT INFORMATION
  Report Type: Spontaneous
  Country: US (occurrence: US)
  Receive Date: 20240423
  Receipt Date: 20240423
  Transmission Date: 20240716
  Serious: Yes (Other)
  Sender: FDA-Public Use
  Company Number: US-AMNEAL PHARMACEUTICALS-2024-AMRX-01330

PATIENT
  Sex: Female

DRUGS (1)
  1. PREDNISONE [Suspect]
     Active Substance: PREDNISONE
     Indication: Product used for unknown indication
     Dosage: UNK
     Route: 065

REACTIONS (11)
  - Neuropathy peripheral [Unknown]
  - Taste disorder [Unknown]
  - COVID-19 [Unknown]
  - Strawberry tongue [Recovering/Resolving]
  - Oral herpes [Unknown]
  - Arthritis [Unknown]
  - Parosmia [Unknown]
  - Weight increased [Unknown]
  - Nausea [Unknown]
  - Decreased appetite [Unknown]
  - Myalgia [Unknown]
